FAERS Safety Report 14124332 (Version 1)
Quarter: 2017Q4

REPORT INFORMATION
  Report Type: Spontaneous
  Country: NL (occurrence: NL)
  Receive Date: 20171025
  Receipt Date: 20171025
  Transmission Date: 20180321
  Serious: Yes (Other)
  Sender: FDA-Public Use
  Company Number: NL-TEVA-817149ROM

PATIENT
  Age: 54 Year
  Sex: Male

DRUGS (2)
  1. CICLOSPORIN [Suspect]
     Active Substance: CYCLOSPORINE
     Indication: AUTOIMMUNE HAEMOLYTIC ANAEMIA
  2. CICLOSPORIN [Suspect]
     Active Substance: CYCLOSPORINE
     Indication: LYMPHOCYTIC LEUKAEMIA
     Route: 065

REACTIONS (3)
  - Human polyomavirus infection [Unknown]
  - Trichodysplasia spinulosa [Recovered/Resolved]
  - CSF virus identified [Unknown]

NARRATIVE: CASE EVENT DATE: 201312
